FAERS Safety Report 4639145-X (Version None)
Quarter: 2005Q2

REPORT INFORMATION
  Report Type: 
  Country: None (occurrence: None)
  Receive Date: 20050415
  Receipt Date: 20050415
  Transmission Date: 20051028
  Serious: Yes (Other)
  Sender: FDA-Public Use
  Company Number: None

PATIENT
  Sex: Male

DRUGS (2)
  1. CAPEX [Suspect]
     Dosage: ONE APPLICATION 3 X A WEEK
     Dates: start: 20040624
  2. CAPEX FLUOCINOLONE ACETATE TOPICAL SHAMPOO [Suspect]

REACTIONS (1)
  - PHARMACEUTICAL PRODUCT COMPLAINT [None]
